FAERS Safety Report 7630004-7 (Version None)
Quarter: 2011Q3

REPORT INFORMATION
  Report Type: 
  Country: None (occurrence: None)
  Receive Date: 20110722
  Receipt Date: 20110712
  Transmission Date: 20111222
  Serious: Yes (Hospitalization)
  Sender: FDA-Public Use
  Company Number: US-JNJFOC-20110706797

PATIENT
  Sex: Male
  Weight: 35 kg

DRUGS (10)
  1. CIMZIA [Concomitant]
     Dates: start: 20101028
  2. VITAMIN B-12 [Concomitant]
  3. JUICE PLUS [Concomitant]
  4. FERROUS SULFATE TAB [Concomitant]
  5. REMICADE [Suspect]
     Route: 042
     Dates: start: 20110110
  6. FISH OIL [Concomitant]
  7. CALCIUM CARBONATE [Concomitant]
  8. PROBIOTICS [Concomitant]
  9. VITAMIN D [Concomitant]
  10. REMICADE [Suspect]
     Indication: INFLAMMATORY BOWEL DISEASE
     Route: 042
     Dates: start: 20101227

REACTIONS (2)
  - SMALL INTESTINAL OBSTRUCTION [None]
  - CLOSTRIDIAL INFECTION [None]
